FAERS Safety Report 8311894 (Version 2)
Quarter: 2013Q1

REPORT INFORMATION
  Report Type: Spontaneous
  Country: US (occurrence: US)
  Receive Date: 20111227
  Receipt Date: 20130307
  Transmission Date: 20140127
  Serious: Yes (Other)
  Sender: FDA-Public Use
  Company Number: PHEH2011US012373

PATIENT
  Sex: Female

DRUGS (1)
  1. AREDIA [Suspect]

REACTIONS (9)
  - Hip fracture [Unknown]
  - Herpes zoster [Unknown]
  - Oedema peripheral [Unknown]
  - Neutropenia [Unknown]
  - Bone deformity [Unknown]
  - Foot fracture [Unknown]
  - Ovarian cyst [Unknown]
  - Sinus congestion [Unknown]
  - Arthralgia [Unknown]
